FAERS Safety Report 5262456-4 (Version None)
Quarter: 2007Q1

REPORT INFORMATION
  Report Type: 
  Country: None (occurrence: None)
  Receive Date: 20070312
  Receipt Date: 20070227
  Transmission Date: 20070707
  Serious: Yes (Hospitalization)
  Sender: FDA-Public Use
  Company Number: PHBS2007TR03461

PATIENT
  Age: 77 Year
  Sex: Male

DRUGS (5)
  1. COMTAN [Suspect]
     Indication: PARKINSON'S DISEASE
     Route: 048
     Dates: start: 20070224, end: 20070227
  2. GLUCOPHAGE [Concomitant]
     Indication: DIABETES MELLITUS
     Dosage: 1 DF, BID
     Route: 048
     Dates: end: 20070227
  3. NIDILAT [Concomitant]
     Indication: HYPERTENSION
     Route: 048
     Dates: end: 20070227
  4. NOOTROPIL [Concomitant]
     Dosage: UNK, TID
     Route: 065
     Dates: end: 20070227
  5. MADOPAR [Concomitant]
     Indication: PARKINSON'S DISEASE
     Dosage: D
     Route: 048
     Dates: start: 20070224, end: 20070227

REACTIONS (6)
  - FALL [None]
  - INFECTION [None]
  - MOVEMENT DISORDER [None]
  - PNEUMONIA [None]
  - PYREXIA [None]
  - VISION BLURRED [None]
